FAERS Safety Report 13503321 (Version 1)
Quarter: 2017Q2

REPORT INFORMATION
  Report Type: Spontaneous
  Country: CZ (occurrence: CZ)
  Receive Date: 20170502
  Receipt Date: 20170502
  Transmission Date: 20170830
  Serious: Yes (Hospitalization)
  Sender: FDA-Public Use
  Company Number: CZ-PFIZER INC-2017186600

PATIENT
  Age: 60 Year
  Sex: Male

DRUGS (5)
  1. EZETIMIBE. [Concomitant]
     Active Substance: EZETIMIBE
     Dosage: UNK
  2. OMEPRAZOLE. [Concomitant]
     Active Substance: OMEPRAZOLE
     Dosage: UNK
  3. PROPAFENONE. [Concomitant]
     Active Substance: PROPAFENONE
     Dosage: UNK
  4. AMIODARONE HCL [Suspect]
     Active Substance: AMIODARONE HYDROCHLORIDE
     Indication: ATRIAL FIBRILLATION
     Dosage: UNK
     Route: 048
  5. DABIGATRAN [Concomitant]
     Active Substance: DABIGATRAN
     Dosage: UNK

REACTIONS (5)
  - Palpitations [Unknown]
  - Blood thyroid stimulating hormone decreased [Unknown]
  - Dyspnoea [Unknown]
  - Malaise [Unknown]
  - Hyperthyroidism [Unknown]
